FAERS Safety Report 12453337 (Version 1)
Quarter: 2016Q2

REPORT INFORMATION
  Report Type: Spontaneous
  Country: JP (occurrence: JP)
  Receive Date: 20160609
  Receipt Date: 20160609
  Transmission Date: 20160815
  Serious: Yes (Other)
  Sender: FDA-Public Use
  Company Number: PHJP1900JP001969

PATIENT
  Age: 61 Year
  Sex: Male

DRUGS (13)
  1. AZEPTIN [Concomitant]
     Indication: ASTHMA
     Dosage: 4 MG, QD
     Route: 048
     Dates: start: 19910502
  2. INTAL [Concomitant]
     Active Substance: CROMOLYN SODIUM
     Indication: ASTHMA
     Dosage: UNK
     Route: 055
     Dates: start: 19910502
  3. ALEVAIRE [Concomitant]
     Indication: ASTHMA
     Dosage: UNK
     Route: 055
     Dates: start: 19910502
  4. TAGAMET [Concomitant]
     Active Substance: CIMETIDINE
     Indication: GASTRIC ULCER
     Dosage: UNK
     Route: 048
     Dates: start: 199108
  5. PREDONINE [Suspect]
     Active Substance: PREDNISOLONE\PREDNISOLONE ACETATE\PREDNISOLONE SODIUM SUCCINATE
     Indication: ASTHMA
     Dosage: 10 MG, QD
     Route: 048
     Dates: start: 19910502
  6. MEPTIN [Concomitant]
     Active Substance: PROCATEROL HYDROCHLORIDE
     Indication: ASTHMA
     Dosage: 100 MG, QD
     Route: 048
     Dates: start: 19910502
  7. BISOLVON [Concomitant]
     Active Substance: BROMHEXINE HYDROCHLORIDE
     Indication: ASTHMA
     Dosage: 12 MG, QD
     Route: 048
     Dates: start: 19910502
  8. THEO-DUR [Concomitant]
     Active Substance: THEOPHYLLINE ANHYDROUS
     Indication: ASTHMA
     Dosage: 800 MG, QD
     Route: 048
     Dates: start: 19910502
  9. BECOTIDE [Concomitant]
     Active Substance: BECLOMETHASONE DIPROPIONATE
     Indication: ASTHMA
     Dosage: 1.2 G, QD
     Route: 055
     Dates: start: 19910502
  10. SULTANOL [Concomitant]
     Active Substance: ALBUTEROL SULFATE
     Indication: ASTHMA
     Dosage: UNK
     Route: 055
     Dates: start: 19910502
  11. ALOTEC [Suspect]
     Active Substance: METAPROTERENOL SULFATE
     Indication: ASTHMA
     Route: 055
     Dates: start: 19910502
  12. SANDIMMUN [Suspect]
     Active Substance: CYCLOSPORINE
     Indication: ASTHMA
     Dosage: 275 MG, QD
     Route: 048
     Dates: start: 19940811, end: 19940923
  13. ULCERLMIN [Concomitant]
     Active Substance: SUCRALFATE
     Indication: GASTRIC ULCER
     Dosage: UNK
     Route: 048
     Dates: start: 199108

REACTIONS (1)
  - Diabetes mellitus [Recovering/Resolving]
